FAERS Safety Report 5317814-6 (Version None)
Quarter: 2007Q2

REPORT INFORMATION
  Report Type: 
  Country: None (occurrence: None)
  Receive Date: 20070507
  Receipt Date: 20070423
  Transmission Date: 20071010
  Serious: Yes (Hospitalization)
  Sender: FDA-Public Use
  Company Number: JP-PFIZER INC-2007033050

PATIENT
  Age: 73 Year
  Sex: Female

DRUGS (10)
  1. CABASER [Suspect]
     Indication: PARKINSON'S DISEASE
     Route: 048
  2. MENESIT [Concomitant]
     Route: 048
  3. SYMMETREL [Concomitant]
     Route: 048
  4. LAFUTIDINE [Concomitant]
     Route: 048
  5. NAUZELIN [Concomitant]
     Route: 048
  6. PRAMIPEXOLE DIHYDROCHLORIDE [Concomitant]
     Route: 048
  7. LENDORMIN [Concomitant]
     Route: 048
  8. ALOSENN [Concomitant]
     Route: 048
  9. KETOPROFEN [Concomitant]
     Route: 062
  10. DIGESTIVES, INCL ENZYMES [Concomitant]
     Route: 048

REACTIONS (1)
  - AORTIC VALVE STENOSIS [None]
